FAERS Safety Report 21940575 (Version 1)
Quarter: 2023Q1

REPORT INFORMATION
  Report Type: Report from Study
  Country: US (occurrence: US)
  Receive Date: 20230201
  Receipt Date: 20230201
  Transmission Date: 20230417
  Serious: No
  Sender: FDA-Public Use
  Company Number: US-EXELIXIS-CABO-22051788

PATIENT
  Sex: Female

DRUGS (8)
  1. CABOMETYX [Suspect]
     Active Substance: CABOZANTINIB S-MALATE
     Indication: Renal cancer
     Dosage: 40 MG, QD
     Route: 048
     Dates: start: 20220419
  2. GABAPENTIN [Concomitant]
     Active Substance: GABAPENTIN
     Dosage: UNK
  3. HYDROCODONE BITARTRATE AND ACETAMINOPHEN [Concomitant]
     Active Substance: ACETAMINOPHEN\HYDROCODONE BITARTRATE
     Dosage: UNK
  4. LEVOTHYROXINE [Concomitant]
     Active Substance: LEVOTHYROXINE
     Dosage: UNK
  5. OZEMPIC [Concomitant]
     Active Substance: SEMAGLUTIDE
     Dosage: UNK
  6. TRAMADOL HCL [Concomitant]
     Active Substance: TRAMADOL HYDROCHLORIDE
     Dosage: UNK
  7. VICTOZA [Concomitant]
     Active Substance: LIRAGLUTIDE
     Dosage: UNK
  8. TYLENOL [Concomitant]
     Active Substance: ACETAMINOPHEN
     Dosage: UNK

REACTIONS (17)
  - Faeces hard [Unknown]
  - Middle insomnia [Unknown]
  - Dysuria [Unknown]
  - Incontinence [Unknown]
  - Alopecia [Unknown]
  - Depression [Unknown]
  - Headache [Unknown]
  - Fatigue [Unknown]
  - Oral mucosal blistering [Unknown]
  - Palmar-plantar erythrodysaesthesia syndrome [Unknown]
  - Stomatitis [Unknown]
  - Nausea [Unknown]
  - Decreased appetite [Unknown]
  - Taste disorder [Unknown]
  - Diarrhoea [Unknown]
  - Haemorrhage [Unknown]
  - Dehydration [Unknown]
